FAERS Safety Report 4342098-5 (Version None)
Quarter: 2004Q1

REPORT INFORMATION
  Report Type: 
  Country: None (occurrence: None)
  Receive Date: 20040329
  Receipt Date: 20040219
  Transmission Date: 20041129
  Serious: No
  Sender: FDA-Public Use
  Company Number: 03P-163-0245546-00

PATIENT
  Age: 42 Year
  Sex: Female
  Weight: 45.3597 kg

DRUGS (5)
  1. HUMIRA [Suspect]
     Indication: RHEUMATOID ARTHRITIS
     Dosage: 40 MG, 1 IN 2 WK, SUBCUTANEOUS
     Route: 058
     Dates: start: 20031222
  2. METHOTREXATE [Concomitant]
  3. LEFLUNOMIDE [Concomitant]
  4. CALCIUM [Concomitant]
  5. POTASSIUM [Concomitant]

REACTIONS (4)
  - CONDITION AGGRAVATED [None]
  - INJECTION SITE BURNING [None]
  - INJECTION SITE PRURITUS [None]
  - PRURITUS [None]
